FAERS Safety Report 13868471 (Version 1)
Quarter: 2017Q3

REPORT INFORMATION
  Report Type: Report from Study
  Country: None (occurrence: BR)
  Receive Date: 20170815
  Receipt Date: 20170815
  Transmission Date: 20171127
  Serious: Yes (Other)
  Sender: FDA-Public Use
  Company Number: BR-ABBVIE-17K-020-2070018-00

PATIENT
  Age: 47 Year
  Sex: Female
  Weight: 88 kg

DRUGS (1)
  1. HUMIRA [Suspect]
     Active Substance: ADALIMUMAB
     Indication: RHEUMATOID ARTHRITIS
     Route: 058
     Dates: start: 20161223

REACTIONS (5)
  - Immunodeficiency [Unknown]
  - Fungal pharyngitis [Recovered/Resolved]
  - Influenza [Recovered/Resolved]
  - Asthmatic crisis [Unknown]
  - Genital abscess [Recovering/Resolving]

NARRATIVE: CASE EVENT DATE: 201612
